FAERS Safety Report 4556619-0 (Version None)
Quarter: 2005Q1

REPORT INFORMATION
  Report Type: 
  Country: None (occurrence: None)
  Receive Date: 20050118
  Receipt Date: 20050105
  Transmission Date: 20050727
  Serious: Yes (Hospitalization, Other)
  Sender: FDA-Public Use
  Company Number: 2005006101

PATIENT
  Age: 27 Year
  Sex: Female
  Weight: 49.8957 kg

DRUGS (2)
  1. GEODON [Suspect]
     Indication: SCHIZOPHRENIA
     Dosage: 20 MG (20 MG, 11  IN 1 D)
     Dates: start: 20040101
  2. CILEST (ETHINYLESTRADI9L NORGESTRIAMTE) [Concomitant]

REACTIONS (7)
  - AORTIC DILATATION [None]
  - CHEST DISCOMFORT [None]
  - MUSCLE SPASMS [None]
  - MUSCLE TIGHTNESS [None]
  - MUSCLE TWITCHING [None]
  - MUSCULOSKELETAL CHEST PAIN [None]
  - NECK PAIN [None]
